FAERS Safety Report 17046451 (Version 1)
Quarter: 2019Q4

REPORT INFORMATION
  Report Type: Spontaneous
  Country: ES (occurrence: ES)
  Receive Date: 20191119
  Receipt Date: 20191119
  Transmission Date: 20200122
  Serious: Yes (Other)
  Sender: FDA-Public Use
  Company Number: ES-ROCHE-2469369

PATIENT
  Age: 74 Year
  Sex: Male

DRUGS (1)
  1. RIVOTRIL [Suspect]
     Active Substance: CLONAZEPAM
     Indication: PRODUCT USED FOR UNKNOWN INDICATION
     Route: 048
     Dates: start: 201611, end: 20170201

REACTIONS (14)
  - Autoimmune hepatitis [Unknown]
  - Ataxia [Recovered/Resolved]
  - Dry mouth [Recovered/Resolved]
  - Drug withdrawal syndrome [Recovered/Resolved]
  - Amnesia [Not Recovered/Not Resolved]
  - Disturbance in attention [Not Recovered/Not Resolved]
  - Insomnia [Recovered/Resolved]
  - Erectile dysfunction [Recovered/Resolved]
  - Dysarthria [Recovered/Resolved]
  - Visual impairment [Recovered/Resolved]
  - Dry eye [Not Recovered/Not Resolved]
  - Platelet count decreased [Recovered/Resolved]
  - Constipation [Recovered/Resolved]
  - Haemolytic anaemia [Unknown]

NARRATIVE: CASE EVENT DATE: 201612
